FAERS Safety Report 19218792 (Version 2)
Quarter: 2021Q2

REPORT INFORMATION
  Report Type: Spontaneous
  Country: FR (occurrence: FR)
  Receive Date: 20210505
  Receipt Date: 20210524
  Transmission Date: 20210717
  Serious: Yes (Hospitalization)
  Sender: FDA-Public Use
  Company Number: FR-GLAXOSMITHKLINE-FR2021095064

PATIENT
  Age: 87 Year
  Sex: Female

DRUGS (2)
  1. AMOXICILLIN SODIUM [Suspect]
     Active Substance: AMOXICILLIN SODIUM
     Indication: SINUSITIS
     Dosage: 12 G, QD(2G 6 TIMES A DAY)
     Route: 041
     Dates: start: 20210402, end: 20210406
  2. ZOVIRAX [Suspect]
     Active Substance: ACYCLOVIR
     Indication: SINUSITIS
     Dosage: 10875 MG, QD(625MG 3 TIMES A DAY)
     Route: 041
     Dates: start: 20210402, end: 20210406

REACTIONS (3)
  - Crystalluria [Not Recovered/Not Resolved]
  - Nephropathy toxic [Not Recovered/Not Resolved]
  - Off label use [Unknown]

NARRATIVE: CASE EVENT DATE: 20210406
